FAERS Safety Report 5738843-4 (Version None)
Quarter: 2008Q2

REPORT INFORMATION
  Report Type: 
  Country: None (occurrence: None)
  Receive Date: 20080513
  Receipt Date: 20080506
  Transmission Date: 20081010
  Serious: Yes (Hospitalization)
  Sender: FDA-Public Use
  Company Number: CERZ-1000211

PATIENT
  Age: 20 Month
  Sex: Male
  Weight: 12 kg

DRUGS (2)
  1. CEREZYME [Suspect]
     Indication: GAUCHER'S DISEASE
     Dosage: 60 U/KG, Q2W, INTRAVENOUS
     Route: 042
     Dates: start: 20080314
  2. VERAPAMIL [Concomitant]

REACTIONS (4)
  - ANXIETY [None]
  - FLUSHING [None]
  - OXYGEN SATURATION DECREASED [None]
  - TACHYPNOEA [None]
